FAERS Safety Report 8630248 (Version 2)
Quarter: 2012Q4

REPORT INFORMATION
  Report Type: 
  Country: US (occurrence: US)
  Receive Date: 20120622
  Receipt Date: 20120910
  Transmission Date: 20130627
  Serious: Yes (Hospitalization, Other)
  Sender: FDA-Public Use
  Company Number: US-BAYER-2012-060806

PATIENT
  Age: 38 Year
  Sex: Female
  Weight: 86.17 kg

DRUGS (8)
  1. YAZ [Suspect]
     Indication: CONTRACEPTION
     Dosage: UNK
     Dates: start: 20080206, end: 20100618
  2. GIANVI [Suspect]
     Indication: CONTRACEPTION
     Dosage: UNK
     Dates: start: 20100618, end: 20110116
  3. PROTONIX [Concomitant]
     Indication: PROPHYLAXIS
  4. ZOLOFT [Concomitant]
     Dosage: UNK
  5. ACIDOPHILUS [Concomitant]
  6. TORADOL [Concomitant]
  7. NSAID^S [Concomitant]
  8. MIGRAINE MEDICATION [Concomitant]

REACTIONS (5)
  - Pulmonary embolism [Recovering/Resolving]
  - Thrombosis [None]
  - Injury [None]
  - Pleuritic pain [Recovering/Resolving]
  - Dyspnoea [Recovering/Resolving]
